FAERS Safety Report 10029449 (Version 3)
Quarter: 2014Q2

REPORT INFORMATION
  Report Type: Report from Study
  Country: DE (occurrence: DE)
  Receive Date: 20140322
  Receipt Date: 20140421
  Transmission Date: 20141212
  Serious: Yes (Hospitalization)
  Sender: FDA-Public Use
  Company Number: PHHY2014DE031142

PATIENT
  Sex: Male

DRUGS (12)
  1. AMN107 [Suspect]
     Indication: CHRONIC MYELOID LEUKAEMIA
     Dosage: 600 MG, PER DAY
     Route: 048
     Dates: start: 20120330, end: 20140217
  2. SIMVASTATIN [Concomitant]
     Indication: HYPERCHOLESTEROLAEMIA
     Dosage: 40 MG, PER DAY
  3. MONOBETA [Concomitant]
     Indication: MYOCARDIAL INFARCTION
     Dosage: 40 MG, PER DAY
  4. METOPROLOL [Concomitant]
     Indication: CORONARY ARTERY DISEASE
     Dosage: 50 MG, PER DAY
  5. LASIX [Concomitant]
     Indication: HYPERTENSION
     Dosage: 100 MG, PER DAY
  6. LASIX [Concomitant]
     Indication: CORONARY ARTERY DISEASE
  7. HYDROXYCARBAMIDE [Concomitant]
     Indication: CHRONIC MYELOID LEUKAEMIA
     Dosage: 1000 MG, PER DAY
     Dates: start: 20120326, end: 20120329
  8. ALLOPURINOL [Concomitant]
     Indication: CELL DEATH
     Dosage: 600 MG, PER DAY
     Dates: start: 20120323
  9. KALINOR                            /01478101/ [Concomitant]
     Indication: HYPOKALAEMIA
     Dosage: 1 DF, PER DAY
     Dates: start: 20120413
  10. SPIRONOLACTON [Concomitant]
     Indication: CORONARY ARTERY DISEASE
     Dosage: 25 MG, QD
  11. BELOC-ZOC MITE [Concomitant]
     Indication: HYPERTONIA
     Dosage: 47.5 MG, PER DAY
  12. DELIX [Concomitant]
     Indication: HYPERTONIA
     Dosage: 2.5 MG, PER DAY

REACTIONS (6)
  - Myocardial infarction [Recovered/Resolved]
  - Coronary artery stenosis [Recovered/Resolved]
  - Chest pain [Recovered/Resolved]
  - Dyspnoea [Recovered/Resolved]
  - Angina pectoris [Recovered/Resolved]
  - Hyperhidrosis [Recovered/Resolved]
